FAERS Safety Report 6007465-2 (Version None)
Quarter: 2008Q4

REPORT INFORMATION
  Report Type: 
  Country: None (occurrence: None)
  Receive Date: 20081217
  Receipt Date: 20080424
  Transmission Date: 20090506
  Serious: No
  Sender: FDA-Public Use
  Company Number: US-ASTRAZENECA-2008UW08417

PATIENT
  Age: 52 Year
  Sex: Female
  Weight: 54.4 kg

DRUGS (2)
  1. CRESTOR [Suspect]
     Indication: HYPERCHOLESTEROLAEMIA
     Route: 048
     Dates: start: 20080423
  2. RAMIPRIL [Concomitant]

REACTIONS (2)
  - DIZZINESS [None]
  - DRY MOUTH [None]
